FAERS Safety Report 22357165 (Version 1)
Quarter: 2023Q2

REPORT INFORMATION
  Report Type: Other
  Country: US (occurrence: US)
  Receive Date: 20230524
  Receipt Date: 20230524
  Transmission Date: 20230721
  Serious: Yes (Disabling, Other)
  Sender: FDA-Public Use
  Company Number: US-DEXPHARM-20231243

PATIENT
  Age: 50 Year
  Sex: Female

DRUGS (3)
  1. DEXAMETHASONE [Suspect]
     Active Substance: DEXAMETHASONE
     Dosage: SHE UNDERWENT A C5-6 INTERLAMINAR EPIDURAL STEROID INJECTION USING LOSS-OF-RESISTANCE TECHNIQUE A...
     Route: 050
  2. MIDAZOLAM [Suspect]
     Active Substance: MIDAZOLAM
     Indication: Sedation
     Dosage: SHE UNDERWENT A C5-6 INTERLAMINAR EPIDURAL STEROID INJECTION USING LOSS-OF-RESISTANCE TECHNIQUE A...
  3. PROPOFOL [Suspect]
     Active Substance: PROPOFOL
     Indication: Sedation
     Dosage: SHE UNDERWENT A C5-6 INTERLAMINAR EPIDURAL STEROID INJECTION USING LOSS-OF-RESISTANCE TECHNIQUE A...

REACTIONS (6)
  - Pain [Not Recovered/Not Resolved]
  - Allodynia [Not Recovered/Not Resolved]
  - Spinal cord oedema [Not Recovered/Not Resolved]
  - Lhermitte^s sign [Not Recovered/Not Resolved]
  - Hypoaesthesia [Not Recovered/Not Resolved]
  - Pain [Not Recovered/Not Resolved]
